FAERS Safety Report 9490941 (Version 1)
Quarter: 2013Q3

REPORT INFORMATION
  Report Type: Spontaneous
  Country: US (occurrence: US)
  Receive Date: 20130830
  Receipt Date: 20130830
  Transmission Date: 20140515
  Serious: No
  Sender: FDA-Public Use
  Company Number: US-PFIZER INC-2013249201

PATIENT
  Age: 55 Year
  Sex: Female
  Weight: 65.76 kg

DRUGS (4)
  1. CELEBREX [Suspect]
     Indication: LOCAL SWELLING
     Dosage: 200 MG, DAILY
     Dates: start: 201308
  2. CELEBREX [Suspect]
     Indication: LOCALISED INFECTION
  3. BENICAR [Concomitant]
     Indication: HYPERTENSION
     Dosage: 40MG/25MG, 1X/DAY
  4. LIPITOR [Concomitant]
     Indication: BLOOD CHOLESTEROL INCREASED
     Dosage: 20 MG, DAILY

REACTIONS (3)
  - Burning sensation [Not Recovered/Not Resolved]
  - Paraesthesia [Not Recovered/Not Resolved]
  - Pruritus generalised [Not Recovered/Not Resolved]
